FAERS Safety Report 4425357-7 (Version None)
Quarter: 2004Q3

REPORT INFORMATION
  Report Type: 
  Country: None (occurrence: None)
  Receive Date: 20040812
  Receipt Date: 20040812
  Transmission Date: 20050211
  Serious: Yes (Other)
  Sender: FDA-Public Use
  Company Number: None

PATIENT
  Age: 23 Year
  Sex: Male
  Weight: 69.8539 kg

DRUGS (2)
  1. VANCOMYCIN [Suspect]
     Dosage: IV
     Route: 042
     Dates: start: 20040726
  2. BACTRIM DS [Concomitant]

REACTIONS (4)
  - BURNING SENSATION [None]
  - DRUG HYPERSENSITIVITY [None]
  - PRURITUS [None]
  - URTICARIA [None]
